FAERS Safety Report 23621655 (Version 1)
Quarter: 2024Q1

REPORT INFORMATION
  Report Type: Spontaneous
  Country: US (occurrence: None)
  Receive Date: 20240311
  Receipt Date: 20240311
  Transmission Date: 20240410
  Serious: Yes (Death)
  Sender: FDA-Public Use
  Company Number: None

PATIENT
  Age: 84 Year
  Sex: Female

DRUGS (1)
  1. LENALIDOMIDE [Suspect]
     Active Substance: LENALIDOMIDE
     Indication: Plasma cell myeloma
     Dosage: 5MG QD ORAL
     Route: 048
     Dates: start: 20220825, end: 20240304

REACTIONS (5)
  - Renal injury [None]
  - Pulmonary oedema [None]
  - Respiratory failure [None]
  - Plasma cell myeloma refractory [None]
  - Hospice care [None]

NARRATIVE: CASE EVENT DATE: 20240310
